FAERS Safety Report 6870962-1 (Version None)
Quarter: 2010Q3

REPORT INFORMATION
  Report Type: 
  Country: None (occurrence: None)
  Receive Date: 20100723
  Receipt Date: 20100712
  Transmission Date: 20110219
  Serious: Yes (Hospitalization)
  Sender: FDA-Public Use
  Company Number: JP-ELI_LILLY_AND_COMPANY-JP201007002447

PATIENT
  Age: 57 Year
  Sex: Male
  Weight: 48 kg

DRUGS (16)
  1. PEMETREXED [Suspect]
     Indication: LUNG ADENOCARCINOMA STAGE IV
     Dosage: 500 MG/M2, UNKNOWN
     Route: 042
     Dates: start: 20091106, end: 20100430
  2. PANVITAN [Concomitant]
     Dosage: 1 G, UNKNOWN
     Route: 048
     Dates: start: 20091023, end: 20100525
  3. HYDROXOCOBALAMIN ACETATE [Concomitant]
     Dosage: 1 MG, UNKNOWN
     Route: 030
     Dates: start: 20091023, end: 20100402
  4. KYTRIL [Concomitant]
     Dosage: UNK, UNKNOWN
     Route: 042
     Dates: start: 20091106, end: 20100430
  5. DECADRON [Concomitant]
     Dosage: UNK, UNKNOWN
     Route: 042
     Dates: start: 20091106, end: 20100430
  6. VOLTAREN [Concomitant]
     Indication: CANCER PAIN
     Dosage: UNK, UNKNOWN
     Route: 048
     Dates: end: 20100519
  7. MAGNESIUM OXIDE [Concomitant]
     Indication: CONSTIPATION
     Dosage: UNK, UNKNOWN
     Route: 048
     Dates: start: 20091108
  8. LAXOBERON [Concomitant]
     Indication: CONSTIPATION
     Dosage: UNK, UNKNOWN
     Route: 048
     Dates: start: 20091109
  9. PURSENNID [Concomitant]
     Indication: CONSTIPATION
     Dosage: UNK, UNKNOWN
     Route: 048
     Dates: start: 20091109
  10. KETOPROFEN [Concomitant]
     Indication: CANCER PAIN
     Dosage: UNK, UNKNOWN
     Route: 058
     Dates: start: 20091111
  11. RINDERON-V [Concomitant]
     Indication: RASH
     Dosage: UNK, UNKNOWN
     Route: 058
     Dates: start: 20091112, end: 20091116
  12. DERMOVATE [Concomitant]
     Indication: RASH
     Dosage: UNK, UNKNOWN
     Route: 058
     Dates: start: 20091116, end: 20091125
  13. HIRUDOID [Concomitant]
     Indication: RASH
     Dosage: UNK, UNKNOWN
     Route: 058
     Dates: start: 20091116, end: 20091125
  14. GASTER D [Concomitant]
     Indication: PROPHYLAXIS
     Dosage: UNK, UNKNOWN
     Route: 048
     Dates: start: 20091126, end: 20091218
  15. MUCOSTA [Concomitant]
     Indication: PROPHYLAXIS
     Dosage: UNK, UNKNOWN
     Route: 048
     Dates: start: 20091128, end: 20100101
  16. LOXONIN [Concomitant]
     Indication: CANCER PAIN
     Dosage: UNK, UNKNOWN
     Route: 065
     Dates: start: 20091128, end: 20091218

REACTIONS (1)
  - PNEUMOTHORAX [None]
